FAERS Safety Report 13247476 (Version 3)
Quarter: 2017Q2

REPORT INFORMATION
  Report Type: Spontaneous
  Country: JP (occurrence: JP)
  Receive Date: 20170217
  Receipt Date: 20170405
  Transmission Date: 20170830
  Serious: Yes (Death, Life-Threatening, Other)
  Sender: FDA-Public Use
  Company Number: JP-ABBVIE-17P-087-1878881-00

PATIENT
  Age: 80 Year
  Sex: Male
  Weight: 64.3 kg

DRUGS (1)
  1. LEUPLIN [Suspect]
     Active Substance: LEUPROLIDE ACETATE
     Indication: PROSTATE CANCER
     Dosage: 22.5 MG, Q6MONTHS
     Route: 058
     Dates: start: 20170130, end: 20170130

REACTIONS (3)
  - Bladder cancer [Fatal]
  - Condition aggravated [Fatal]
  - Ascites [Fatal]

NARRATIVE: CASE EVENT DATE: 20170206
